FAERS Safety Report 10174003 (Version 1)
Quarter: 2014Q2

REPORT INFORMATION
  Report Type: Spontaneous
  Country: PK (occurrence: None)
  Receive Date: 20140514
  Receipt Date: 20140514
  Transmission Date: 20141212
  Serious: Yes (Other)
  Sender: FDA-Public Use
  Company Number: None

PATIENT
  Age: 49 Year
  Sex: Male
  Weight: 36.29 kg

DRUGS (1)
  1. METFORMIN [Suspect]
     Indication: BLOOD GLUCOSE INCREASED
     Route: 048
     Dates: start: 20040512, end: 20140513

REACTIONS (7)
  - Pruritus [None]
  - Pain [None]
  - Meniere^s disease [None]
  - Vertigo [None]
  - Tinnitus [None]
  - Deafness [None]
  - Myalgia [None]
